FAERS Safety Report 8816521 (Version 1)
Quarter: 2012Q4

REPORT INFORMATION
  Report Type: Spontaneous
  Country: US (occurrence: None)
  Receive Date: 20120927
  Receipt Date: 20120927
  Transmission Date: 20130627
  Serious: Yes (Hospitalization, Other)
  Sender: FDA-Public Use
  Company Number: MIN-00872

PATIENT
  Age: 12 Year
  Sex: Female

DRUGS (1)
  1. MINOCYCLINE [Suspect]
     Indication: ACNE

REACTIONS (9)
  - Nausea [None]
  - Pupillary reflex impaired [None]
  - VIth nerve paralysis [None]
  - Papilloedema [None]
  - Retinal exudates [None]
  - Retinal haemorrhage [None]
  - Optic atrophy [None]
  - Intracranial pressure increased [None]
  - Blindness [None]
